FAERS Safety Report 14538993 (Version 1)
Quarter: 2018Q1

REPORT INFORMATION
  Report Type: Spontaneous
  Country: US (occurrence: US)
  Receive Date: 20180216
  Receipt Date: 20180216
  Transmission Date: 20180509
  Serious: Yes (Other)
  Sender: FDA-Public Use
  Company Number: US-DRREDDYS-USA/USA/18/0096267

PATIENT
  Sex: Female

DRUGS (3)
  1. PACLITAXEL. [Suspect]
     Active Substance: PACLITAXEL
     Indication: CERVIX CARCINOMA
     Dosage: ON DAY 1 OF A 21 DAY CYCLE
     Route: 065
  2. TOPOTECAN HYDROCHLORIDE FOR INJECTION [Suspect]
     Active Substance: TOPOTECAN HYDROCHLORIDE
     Indication: CERVIX CARCINOMA
     Dosage: ON DAYS 1-3 OF 21 DAY CYCLE
  3. BEVACIZUMAB. [Suspect]
     Active Substance: BEVACIZUMAB
     Indication: CERVIX CARCINOMA
     Dosage: ON DAY 1 OF A 21 DAY CYCLE
     Route: 065

REACTIONS (4)
  - Disease progression [Unknown]
  - Toxicity to various agents [Unknown]
  - Metastases to central nervous system [Unknown]
  - Fatigue [Unknown]
